FAERS Safety Report 8011377-2 (Version None)
Quarter: 2011Q4

REPORT INFORMATION
  Report Type: 
  Country: None (occurrence: None)
  Receive Date: 20111222
  Receipt Date: 20111208
  Transmission Date: 20120403
  Serious: Yes (Hospitalization, Other)
  Sender: FDA-Public Use
  Company Number: 2011001605

PATIENT
  Age: 70 Year
  Sex: Male
  Weight: 86 kg

DRUGS (41)
  1. SORAFENIB (SORAFENIB) [Suspect]
     Indication: HEPATIC NEOPLASM MALIGNANT
     Dosage: 400 MG, BID, ORAL
     Route: 048
     Dates: start: 20110208, end: 20110228
  2. SORAFENIB (SORAFENIB) [Suspect]
     Indication: HEPATIC NEOPLASM MALIGNANT
     Dosage: 400 MG, BID, ORAL
     Route: 048
     Dates: start: 20101228, end: 20110207
  3. SORAFENIB (SORAFENIB) [Suspect]
     Indication: HEPATIC NEOPLASM MALIGNANT
     Dosage: 400 MG, BID, ORAL
     Route: 048
     Dates: start: 20110322
  4. COLCHIMAX (COLCHIMAX) [Concomitant]
  5. XENETIX (IOBITRIDOL) [Concomitant]
  6. XENETIX (IOBITRIDOL) [Concomitant]
  7. PHOSPHONEUROS (CALCIUM PHOSPHATE DIBASIC, MAGNESIUM GLYCEROPHOSPHATE, [Concomitant]
  8. FLUTICASONE PROPIONATE [Concomitant]
  9. SANDOSTATINE (OCTREOTIDE) [Concomitant]
  10. DOTAREM (MEGLUMINE GADOTERATE) [Concomitant]
  11. SPASFON (PHLOROGLUCINOL) [Concomitant]
  12. XYZAL [Concomitant]
  13. ENALAPRIL MALEATE [Concomitant]
  14. CALCIPRAT (CALCIUM CARBONATE) [Concomitant]
  15. PROPRANOLOL [Concomitant]
  16. ALLOPURINOL [Concomitant]
  17. BIAFINE (BIAFINE) [Concomitant]
  18. REPAGLINIDE [Concomitant]
  19. MONTMORILLONITE (MONTMORILLONITE) [Concomitant]
  20. AUGMENTIN '125' [Concomitant]
  21. POTASSIUM CHLORIDE [Concomitant]
  22. FERROUS SULFATE TAB [Concomitant]
  23. ERLOTINIB HYDROCHLORIDE [Suspect]
     Indication: HEPATIC NEOPLASM MALIGNANT
     Dosage: 150 MG, BID, ORAL, 150 MG, UID/QD, ORAL, 150 MG, UID/QD, ORAL
     Route: 048
     Dates: start: 20101228, end: 20110207
  24. ERLOTINIB HYDROCHLORIDE [Suspect]
     Indication: HEPATIC NEOPLASM MALIGNANT
     Dosage: 150 MG, BID, ORAL, 150 MG, UID/QD, ORAL, 150 MG, UID/QD, ORAL
     Route: 048
     Dates: start: 20110208, end: 20110228
  25. ERLOTINIB HYDROCHLORIDE [Suspect]
     Indication: HEPATIC NEOPLASM MALIGNANT
     Dosage: 150 MG, BID, ORAL, 150 MG, UID/QD, ORAL, 150 MG, UID/QD, ORAL
     Route: 048
     Dates: start: 20110322
  26. MICARDIS [Concomitant]
  27. KETOPROFEN [Concomitant]
  28. NOVOLOG [Concomitant]
  29. PROCTOLOG (RUSCOGENIN) [Concomitant]
  30. METFORMIN HCL [Concomitant]
  31. IMMUNE GLOBULIN INTRAVENOUS (HUMAN) [Concomitant]
  32. PRITOR (TELMISARTAN) [Concomitant]
  33. CLOBETASOL PROPIONATE [Concomitant]
  34. POTASSIUM CHLORIDE [Concomitant]
  35. VERAPAMIL [Concomitant]
  36. LANTUS [Concomitant]
  37. PERINDOPRIL ERBUMINE [Concomitant]
  38. ATORVASTATIN CALCIUM [Concomitant]
  39. NEXIUM [Concomitant]
  40. MAG 2 (MAGNESIUM PIDOLATE) [Concomitant]
  41. IMODIUM [Concomitant]

REACTIONS (6)
  - ASCITES [None]
  - FATIGUE [None]
  - CYTOLYTIC HEPATITIS [None]
  - HEPATIC STEATOSIS [None]
  - THROMBOCYTOPENIA [None]
  - ASTHENIA [None]
